FAERS Safety Report 22627514 (Version 1)
Quarter: 2023Q2

REPORT INFORMATION
  Report Type: Spontaneous
  Country: US (occurrence: US)
  Receive Date: 20230622
  Receipt Date: 20230622
  Transmission Date: 20230721
  Serious: Yes (Disabling)
  Sender: FDA-Public Use
  Company Number: US-AMGEN-USASP2023102640

PATIENT
  Age: 56 Year
  Sex: Female

DRUGS (2)
  1. PROLIA [Suspect]
     Active Substance: DENOSUMAB
     Indication: Product used for unknown indication
     Dosage: UNK
     Route: 065
  2. KEVZARA [Suspect]
     Active Substance: SARILUMAB
     Indication: Rheumatoid arthritis
     Dosage: 200 MILLIGRAM, Q2WK
     Route: 058
     Dates: start: 202210

REACTIONS (5)
  - Loss of personal independence in daily activities [Unknown]
  - Malaise [Unknown]
  - Gait disturbance [Unknown]
  - Migraine [Unknown]
  - Pain [Unknown]
